FAERS Safety Report 16846577 (Version 2)
Quarter: 2019Q4

REPORT INFORMATION
  Report Type: Report from Study
  Country: CO (occurrence: CO)
  Receive Date: 20190924
  Receipt Date: 20191004
  Transmission Date: 20200122
  Serious: Yes (Hospitalization, Other)
  Sender: FDA-Public Use
  Company Number: CO-INCYTE CORPORATION-2019IN009315

PATIENT

DRUGS (1)
  1. JAKAVI [Suspect]
     Active Substance: RUXOLITINIB
     Indication: MYELOFIBROSIS
     Dosage: 10 MG, QD
     Route: 048
     Dates: start: 20190830

REACTIONS (9)
  - Splenitis [Unknown]
  - Diarrhoea [Recovering/Resolving]
  - Lactose intolerance [Unknown]
  - Abdominal discomfort [Unknown]
  - Device occlusion [Unknown]
  - Inappropriate schedule of product administration [Unknown]
  - Mood altered [Unknown]
  - Ascites [Unknown]
  - Portal hypertension [Unknown]
